FAERS Safety Report 18770667 (Version 3)
Quarter: 2023Q1

REPORT INFORMATION
  Report Type: Report from Study
  Country: CA (occurrence: CA)
  Receive Date: 20210122
  Receipt Date: 20230302
  Transmission Date: 20230417
  Serious: Yes (Hospitalization, Other)
  Sender: FDA-Public Use
  Company Number: CA-JNJFOC-20161109316

PATIENT
  Age: 37 Year
  Sex: Female
  Weight: 92 kg

DRUGS (7)
  1. REMICADE [Suspect]
     Active Substance: INFLIXIMAB
     Indication: Colitis ulcerative
     Route: 042
     Dates: start: 20161029
  2. REMICADE [Suspect]
     Active Substance: INFLIXIMAB
     Indication: Crohn^s disease
  3. XARELTO [Suspect]
     Active Substance: RIVAROXABAN
     Indication: Thrombosis
     Route: 048
  4. BENADRYL [Suspect]
     Active Substance: DIPHENHYDRAMINE HYDROCHLORIDE
     Indication: Serum sickness
     Route: 042
  5. BENADRYL [Suspect]
     Active Substance: DIPHENHYDRAMINE HYDROCHLORIDE
     Indication: Urticaria
  6. BENADRYL [Suspect]
     Active Substance: DIPHENHYDRAMINE HYDROCHLORIDE
     Indication: Paralysis
  7. PREDNISONE [Concomitant]
     Active Substance: PREDNISONE
     Indication: Colitis ulcerative
     Dosage: TAMPERING DOSE
     Route: 065

REACTIONS (14)
  - Paralysis [Unknown]
  - Serum sickness [Recovered/Resolved]
  - Deep vein thrombosis [Unknown]
  - Pulmonary embolism [Unknown]
  - Polyarthritis [Unknown]
  - Colectomy [Unknown]
  - Immobile [Unknown]
  - Haemorrhage [Unknown]
  - Anaemia [Unknown]
  - Lupus-like syndrome [Unknown]
  - Colitis [Unknown]
  - C-reactive protein increased [Unknown]
  - Dizziness [Unknown]
  - Drug ineffective [Unknown]

NARRATIVE: CASE EVENT DATE: 20160101
